FAERS Safety Report 6780377-2 (Version None)
Quarter: 2010Q2

REPORT INFORMATION
  Report Type: 
  Country: None (occurrence: None)
  Receive Date: 20100618
  Receipt Date: 20100611
  Transmission Date: 20101027
  Serious: Yes (Other)
  Sender: FDA-Public Use
  Company Number: US-GENENTECH-303005

PATIENT
  Sex: Female

DRUGS (8)
  1. XOLAIR [Suspect]
     Indication: ASTHMA
     Dosage: UNK
     Route: 058
     Dates: start: 20090624, end: 20100105
  2. ALLEGRA [Concomitant]
     Indication: DRUG USE FOR UNKNOWN INDICATION
  3. ASTEPRO [Concomitant]
     Indication: DRUG USE FOR UNKNOWN INDICATION
  4. NASACORT [Concomitant]
     Indication: DRUG USE FOR UNKNOWN INDICATION
  5. SYMBICORT [Concomitant]
     Indication: DRUG USE FOR UNKNOWN INDICATION
  6. VERAMYST [Concomitant]
     Indication: DRUG USE FOR UNKNOWN INDICATION
  7. XOPENEX HFA [Concomitant]
     Indication: DRUG USE FOR UNKNOWN INDICATION
  8. ZADITOR [Concomitant]
     Indication: DRUG USE FOR UNKNOWN INDICATION

REACTIONS (3)
  - ABDOMINAL PAIN [None]
  - DYSPNOEA [None]
  - HYPERSENSITIVITY [None]
